FAERS Safety Report 13878313 (Version 1)
Quarter: 2017Q3

REPORT INFORMATION
  Report Type: Spontaneous
  Country: US (occurrence: US)
  Receive Date: 20170817
  Receipt Date: 20170817
  Transmission Date: 20171127
  Serious: No
  Sender: FDA-Public Use
  Company Number: US-ROCHE-1154385

PATIENT
  Sex: Male

DRUGS (4)
  1. RIBAVIRIN. [Suspect]
     Active Substance: RIBAVIRIN
     Indication: HEPATITIS C
     Route: 065
     Dates: start: 200709
  2. PROCRIT [Suspect]
     Active Substance: ERYTHROPOIETIN
     Indication: RED BLOOD CELL COUNT DECREASED
     Route: 065
  3. NEUPOGEN [Suspect]
     Active Substance: FILGRASTIM
     Indication: WHITE BLOOD CELL COUNT DECREASED
     Route: 065
  4. PEGASYS [Suspect]
     Active Substance: PEGINTERFERON ALFA-2A
     Indication: HEPATITIS C
     Route: 065
     Dates: start: 200709

REACTIONS (11)
  - Pyrexia [Unknown]
  - Hepatitis C RNA [Not Recovered/Not Resolved]
  - Feeling abnormal [Unknown]
  - Influenza like illness [Unknown]
  - Contrast media reaction [Recovered/Resolved]
  - Arthritis [Unknown]
  - Therapy non-responder [Unknown]
  - Swelling [Unknown]
  - Rash [Unknown]
  - Psoriasis [Unknown]
  - Liver function test abnormal [Not Recovered/Not Resolved]
